FAERS Safety Report 18901316 (Version 2)
Quarter: 2021Q1

REPORT INFORMATION
  Report Type: Spontaneous
  Country: CA (occurrence: CA)
  Receive Date: 20210216
  Receipt Date: 20210301
  Transmission Date: 20210420
  Serious: Yes (Death, Other)
  Sender: FDA-Public Use
  Company Number: CA-PFIZER INC-2021129463

PATIENT
  Age: 84 Year
  Sex: Female

DRUGS (2)
  1. AI [Concomitant]
     Active Substance: ESTRADIOL VALERATE\NORETHINDRONE ENANTHATE
     Dosage: UNK
  2. IBRANCE [Suspect]
     Active Substance: PALBOCICLIB
     Dosage: UNK
     Dates: start: 20171103

REACTIONS (1)
  - Death [Fatal]

NARRATIVE: CASE EVENT DATE: 20200817
